FAERS Safety Report 6817153-8 (Version None)
Quarter: 2010Q2

REPORT INFORMATION
  Report Type: 
  Country: None (occurrence: None)
  Receive Date: 20100630
  Receipt Date: 20100616
  Transmission Date: 20101027
  Serious: Yes (Life-Threatening)
  Sender: FDA-Public Use
  Company Number: 2010AL003630

PATIENT
  Sex: Female

DRUGS (2)
  1. FLUOXETINE [Suspect]
     Indication: SEASONAL AFFECTIVE DISORDER
     Dates: start: 20000101
  2. ORLISTAT [Concomitant]

REACTIONS (2)
  - DEPRESSION SUICIDAL [None]
  - SELF-INJURIOUS IDEATION [None]
